FAERS Safety Report 25540061 (Version 1)
Quarter: 2025Q3

REPORT INFORMATION
  Report Type: Spontaneous
  Country: US (occurrence: US)
  Receive Date: 20250710
  Receipt Date: 20250710
  Transmission Date: 20251020
  Serious: No
  Sender: INSUD PHARMA
  Company Number: US-INSUD PHARMA-2507US05325

PATIENT

DRUGS (1)
  1. TESTOSTERONE [Suspect]
     Active Substance: TESTOSTERONE
     Indication: Blood testosterone decreased
     Dosage: 2 PUMPS DAILY
     Route: 062
     Dates: start: 2022

REACTIONS (2)
  - Blood testosterone increased [Unknown]
  - Therapeutic drug monitoring analysis incorrectly performed [Unknown]

NARRATIVE: CASE EVENT DATE: 20250626
